FAERS Safety Report 6647022-8 (Version None)
Quarter: 2010Q1

REPORT INFORMATION
  Report Type: 
  Country: None (occurrence: None)
  Receive Date: 20100323
  Receipt Date: 20100128
  Transmission Date: 20100710
  Serious: No
  Sender: FDA-Public Use
  Company Number: A0841873A

PATIENT
  Age: 62 Year
  Sex: Male

DRUGS (4)
  1. LAMICTAL XR [Suspect]
     Dosage: 1TAB PER DAY
     Route: 048
     Dates: start: 20100110
  2. GABAPENTIN [Concomitant]
  3. ASPIRIN [Concomitant]
  4. HYDROCODONE [Concomitant]

REACTIONS (1)
  - DRUG INEFFECTIVE [None]
